FAERS Safety Report 20991833 (Version 1)
Quarter: 2022Q2

REPORT INFORMATION
  Report Type: Spontaneous
  Country: US (occurrence: None)
  Receive Date: 20220621
  Receipt Date: 20220621
  Transmission Date: 20220720
  Serious: No
  Sender: FDA-Public Use
  Company Number: None

PATIENT
  Age: 79 Year
  Sex: Female

DRUGS (1)
  1. REPATHA [Suspect]
     Active Substance: EVOLOCUMAB
     Dosage: 140MG EVERY 2 WEEKS SC
     Route: 058

REACTIONS (5)
  - Balance disorder [None]
  - Eye movement disorder [None]
  - Bedridden [None]
  - Pain [None]
  - Therapy cessation [None]
